FAERS Safety Report 12382550 (Version 1)
Quarter: 2016Q2

REPORT INFORMATION
  Report Type: Report from Study
  Country: US (occurrence: US)
  Receive Date: 20160518
  Receipt Date: 20160518
  Transmission Date: 20160815
  Serious: No
  Sender: FDA-Public Use
  Company Number: US-MALLINCKRODT-T201600999

PATIENT
  Sex: Male
  Weight: 73 kg

DRUGS (6)
  1. GILENYA [Concomitant]
     Active Substance: FINGOLIMOD HYDROCHLORIDE
     Dosage: UNK
     Dates: start: 201212
  2. BACLOFEN. [Concomitant]
     Active Substance: BACLOFEN
  3. TAMSULOSIN [Concomitant]
     Active Substance: TAMSULOSIN
  4. VITAMIN D [Concomitant]
     Active Substance: CHOLECALCIFEROL
  5. GABAPENTIN. [Concomitant]
     Active Substance: GABAPENTIN
  6. REPOSITORY CORTICOTROPIN INJECTION [Suspect]
     Active Substance: CORTICOTROPIN
     Indication: MULTIPLE SCLEROSIS
     Dosage: ONCE DAILY FOR 5 DAYS
     Route: 030
     Dates: start: 20140731, end: 20140804

REACTIONS (4)
  - Gait disturbance [Not Recovered/Not Resolved]
  - Feeling abnormal [Recovered/Resolved]
  - Pain [Not Recovered/Not Resolved]
  - Muscular weakness [Not Recovered/Not Resolved]

NARRATIVE: CASE EVENT DATE: 2014
